FAERS Safety Report 9508776 (Version 1)
Quarter: 2013Q3

REPORT INFORMATION
  Report Type: Spontaneous
  Country: US (occurrence: US)
  Receive Date: 20130909
  Receipt Date: 20130909
  Transmission Date: 20140515
  Serious: No
  Sender: FDA-Public Use
  Company Number: US-BRISTOL-MYERS SQUIBB COMPANY-19109404

PATIENT
  Age: 73 Year
  Sex: Male
  Weight: 90.7 kg

DRUGS (10)
  1. ABILIFY TABS 2 MG [Suspect]
     Indication: AFFECT LABILITY
     Dates: start: 20130711
  2. CLONAZEPAM [Concomitant]
     Indication: ANXIETY
     Dosage: TABS?^THE MOST HE CAN TAKE IN ONE DAY IS 3 TABLETS^
  3. RAMIPRIL [Concomitant]
     Dosage: CAPS
  4. ASPIRIN [Concomitant]
  5. GLIPIZIDE [Concomitant]
     Dosage: TABS
  6. VICTOZA [Concomitant]
     Dosage: INJ
  7. ZETIA [Concomitant]
  8. METHYLPHENIDATE TABS 5MG [Concomitant]
     Indication: ATTENTION DEFICIT/HYPERACTIVITY DISORDER
     Dosage: 1DF:5 MG
  9. ZOLPIDEM [Concomitant]
     Indication: INSOMNIA
  10. VITAMIN D [Concomitant]
     Dosage: 1DF:10000 UNITS CAPS

REACTIONS (3)
  - Muscle spasms [Unknown]
  - Pain in extremity [Unknown]
  - Drug prescribing error [Unknown]
